FAERS Safety Report 18435053 (Version 1)
Quarter: 2020Q4

REPORT INFORMATION
  Report Type: Spontaneous
  Country: US (occurrence: US)
  Receive Date: 20201027
  Receipt Date: 20201027
  Transmission Date: 20210114
  Serious: No
  Sender: FDA-Public Use
  Company Number: US-009507513-2009USA011030

PATIENT
  Age: 52 Year
  Weight: 90 kg

DRUGS (2)
  1. REBETOL [Suspect]
     Active Substance: RIBAVIRIN
     Indication: RESPIRATORY SYNCYTIAL VIRUS INFECTION
     Dosage: ONE DOSE OF 600 MG ON DAY ONE
     Route: 048
  2. REBETOL [Suspect]
     Active Substance: RIBAVIRIN
     Dosage: 600 MG THREE TIMES DAILY FROM DAY THREE
     Route: 048

REACTIONS (1)
  - Off label use [Unknown]
